FAERS Safety Report 8254918 (Version 2)
Quarter: 2012Q4

REPORT INFORMATION
  Report Type: 
  Country: US (occurrence: US)
  Receive Date: 20111118
  Receipt Date: 20120913
  Transmission Date: 20130627
  Serious: Yes (Life-Threatening, Hospitalization, Other)
  Sender: FDA-Public Use
  Company Number: US-US-EMD SERONO, INC.-7095777

PATIENT
  Age: 55 None
  Sex: Male
  Weight: 61 kg

DRUGS (6)
  1. REBIF [Suspect]
     Indication: MULTIPLE SCLEROSIS
     Route: 058
     Dates: start: 20100419, end: 201104
  2. REBIF [Suspect]
     Route: 058
     Dates: start: 20110427
  3. NEURONTIN [Concomitant]
     Indication: CONVULSION
  4. DEPAKOTE [Concomitant]
     Indication: CONVULSION
  5. VIBRATE [Concomitant]
     Indication: DEPRESSION
  6. BUSPIRIN [Concomitant]
     Indication: ANXIETY

REACTIONS (11)
  - Splenic rupture [Recovered/Resolved]
  - Pneumothorax traumatic [Recovered/Resolved]
  - Head injury [Recovered/Resolved]
  - Concussion [Recovered/Resolved]
  - Rib fracture [Recovered/Resolved]
  - Road traffic accident [Recovered/Resolved]
  - Bone infarction [Recovered/Resolved]
  - Fracture [Recovered/Resolved]
  - Weight decreased [Unknown]
  - Influenza like illness [Recovered/Resolved]
  - Injection site pain [Not Recovered/Not Resolved]
